FAERS Safety Report 5448360-7 (Version None)
Quarter: 2007Q3

REPORT INFORMATION
  Report Type: 
  Country: None (occurrence: None)
  Receive Date: 20070906
  Receipt Date: 20070827
  Transmission Date: 20080115
  Serious: Yes (Hospitalization)
  Sender: FDA-Public Use
  Company Number: 154059ISR

PATIENT
  Age: 65 Year
  Sex: Female

DRUGS (5)
  1. FLUOROURACIL INJ [Suspect]
     Indication: METASTATIC GASTRIC CANCER
     Dosage: (200 MG/M2,CYCLICAL), INTRAVENOUS (NOT OTHERWISE SPECIFIED)
     Route: 042
     Dates: start: 20070129
  2. FOLINIC ACID [Suspect]
     Indication: METASTATIC GASTRIC CANCER
     Dosage: (1500 MG/M2, CYCLICAL), INTRAVENOUS (NOT OTHERWISE SPECIFIED)
     Route: 042
     Dates: start: 20070129
  3. IRINOTECAN HCL [Suspect]
     Indication: METASTATIC GASTRIC CANCER
     Dosage: (80 MG/M2,CYCLICAL), INTRAVENOUS (NOT OTHERWISE SPECIFIED)
     Route: 042
     Dates: start: 20070129
  4. CETUXIMAB [Suspect]
     Indication: METASTATIC GASTRIC CANCER
     Dosage: (400 MG/M2,CYCLICAL), INTRAVENOUS (NOT OTHERWISE SPECIFIED)
     Route: 042
     Dates: start: 20070129
  5. ZOMETA [Suspect]
     Indication: HYPERCALCAEMIA
     Dosage: (4 MG)
     Dates: start: 20070223, end: 20070223

REACTIONS (3)
  - GENERAL PHYSICAL HEALTH DETERIORATION [None]
  - HYPOCALCAEMIA [None]
  - TROUSSEAU'S SYNDROME [None]
